FAERS Safety Report 23049546 (Version 1)
Quarter: 2023Q4

REPORT INFORMATION
  Report Type: Spontaneous
  Country: US (occurrence: None)
  Receive Date: 20231006
  Receipt Date: 20231006
  Transmission Date: 20240110
  Serious: Yes (Other)
  Sender: FDA-Public Use
  Company Number: None

PATIENT
  Age: 80 Year
  Sex: Male
  Weight: 85.2 kg

DRUGS (2)
  1. CROTALIDAE POLYVALENT IMMUNE FAB (OVINE) [Suspect]
     Active Substance: CROTALIDAE POLYVALENT IMMUNE FAB (OVINE)
     Dosage: OTHER FREQUENCY : ONCE;?
     Route: 041
  2. ANAVIP [Suspect]
     Active Substance: PIT VIPER (CROTALINAE) IMMUNE GLOBULIN ANTIVENIN (EQUINE)
     Indication: Snake bite
     Dosage: OTHER FREQUENCY : ONCE;?
     Route: 042
     Dates: start: 20231005, end: 20231005

REACTIONS (3)
  - Pruritus [None]
  - Urticaria [None]
  - Blood pressure decreased [None]

NARRATIVE: CASE EVENT DATE: 20231005
